FAERS Safety Report 25008211 (Version 2)
Quarter: 2025Q1

REPORT INFORMATION
  Report Type: Spontaneous
  Country: TH (occurrence: TH)
  Receive Date: 20250225
  Receipt Date: 20250306
  Transmission Date: 20250409
  Serious: Yes (Other)
  Sender: ACCORD
  Company Number: TH-MLMSERVICE-20250207-PI399177-00194-1

PATIENT
  Age: 5 Decade
  Sex: Female

DRUGS (28)
  1. LETROZOLE [Suspect]
     Active Substance: LETROZOLE
     Indication: Invasive ductal breast carcinoma
     Dates: start: 2022, end: 2023
  2. ABEMACICLIB [Suspect]
     Active Substance: ABEMACICLIB
     Indication: Invasive ductal breast carcinoma
     Dates: start: 2022, end: 2023
  3. GOSERELIN ACETATE [Suspect]
     Active Substance: GOSERELIN ACETATE
     Indication: Invasive ductal breast carcinoma
     Dates: start: 2022, end: 2023
  4. TRASTUZUMAB [Suspect]
     Active Substance: TRASTUZUMAB
     Indication: Invasive ductal breast carcinoma
     Dates: start: 2022, end: 2022
  5. LETROZOLE [Suspect]
     Active Substance: LETROZOLE
     Indication: HER2 positive breast cancer
     Dates: start: 2022, end: 2023
  6. LETROZOLE [Suspect]
     Active Substance: LETROZOLE
     Indication: Hormone receptor positive breast cancer
     Dates: start: 2022, end: 2023
  7. LETROZOLE [Suspect]
     Active Substance: LETROZOLE
     Indication: Breast cancer metastatic
     Dates: start: 2022, end: 2023
  8. LETROZOLE [Suspect]
     Active Substance: LETROZOLE
     Indication: Metastases to lymph nodes
     Dates: start: 2022, end: 2023
  9. LETROZOLE [Suspect]
     Active Substance: LETROZOLE
     Indication: Metastases to adrenals
     Dates: start: 2022, end: 2023
  10. LETROZOLE [Suspect]
     Active Substance: LETROZOLE
     Indication: Metastases to bone
     Dates: start: 2022, end: 2023
  11. TRASTUZUMAB [Suspect]
     Active Substance: TRASTUZUMAB
     Indication: HER2 positive breast cancer
     Dates: start: 2022, end: 2022
  12. TRASTUZUMAB [Suspect]
     Active Substance: TRASTUZUMAB
     Indication: Hormone receptor positive breast cancer
     Dates: start: 2022, end: 2022
  13. TRASTUZUMAB [Suspect]
     Active Substance: TRASTUZUMAB
     Indication: Breast cancer metastatic
     Dates: start: 2022, end: 2022
  14. TRASTUZUMAB [Suspect]
     Active Substance: TRASTUZUMAB
     Indication: Metastases to lymph nodes
     Dates: start: 2022, end: 2022
  15. TRASTUZUMAB [Suspect]
     Active Substance: TRASTUZUMAB
     Indication: Metastases to adrenals
     Dates: start: 2022, end: 2022
  16. TRASTUZUMAB [Suspect]
     Active Substance: TRASTUZUMAB
     Indication: Metastases to bone
     Dates: start: 2022, end: 2022
  17. ABEMACICLIB [Suspect]
     Active Substance: ABEMACICLIB
     Indication: HER2 positive breast cancer
     Dates: start: 2022, end: 2023
  18. ABEMACICLIB [Suspect]
     Active Substance: ABEMACICLIB
     Indication: Hormone receptor positive breast cancer
     Dates: start: 2022, end: 2023
  19. ABEMACICLIB [Suspect]
     Active Substance: ABEMACICLIB
     Indication: Breast cancer metastatic
     Dates: start: 2022, end: 2023
  20. ABEMACICLIB [Suspect]
     Active Substance: ABEMACICLIB
     Indication: Metastases to lymph nodes
     Dates: start: 2022, end: 2023
  21. ABEMACICLIB [Suspect]
     Active Substance: ABEMACICLIB
     Indication: Metastases to adrenals
     Dates: start: 2022, end: 2023
  22. ABEMACICLIB [Suspect]
     Active Substance: ABEMACICLIB
     Indication: Metastases to bone
     Dates: start: 2022, end: 2023
  23. GOSERELIN ACETATE [Suspect]
     Active Substance: GOSERELIN ACETATE
     Indication: HER2 positive breast cancer
     Dates: start: 2022, end: 2023
  24. GOSERELIN ACETATE [Suspect]
     Active Substance: GOSERELIN ACETATE
     Indication: Hormone receptor positive breast cancer
     Dates: start: 2022, end: 2023
  25. GOSERELIN ACETATE [Suspect]
     Active Substance: GOSERELIN ACETATE
     Indication: Breast cancer metastatic
     Dates: start: 2022, end: 2023
  26. GOSERELIN ACETATE [Suspect]
     Active Substance: GOSERELIN ACETATE
     Indication: Metastases to lymph nodes
     Dates: start: 2022, end: 2023
  27. GOSERELIN ACETATE [Suspect]
     Active Substance: GOSERELIN ACETATE
     Indication: Metastases to adrenals
     Dates: start: 2022, end: 2023
  28. GOSERELIN ACETATE [Suspect]
     Active Substance: GOSERELIN ACETATE
     Indication: Metastases to bone
     Dates: start: 2022, end: 2023

REACTIONS (3)
  - Neutropenia [Recovered/Resolved]
  - Anaemia [Recovered/Resolved]
  - Diarrhoea [Recovering/Resolving]
